FAERS Safety Report 5489083-8 (Version None)
Quarter: 2007Q4

REPORT INFORMATION
  Report Type: 
  Country: None (occurrence: None)
  Receive Date: 20071005
  Receipt Date: 20070614
  Transmission Date: 20080405
  Serious: No
  Sender: FDA-Public Use
  Company Number: PHEH2007US08965

PATIENT

DRUGS (1)
  1. TEKTURNA [Suspect]
     Indication: HYPERTENSION

REACTIONS (2)
  - AGITATION [None]
  - ANGER [None]
